FAERS Safety Report 13022677 (Version 1)
Quarter: 2016Q4

REPORT INFORMATION
  Report Type: Spontaneous
  Country: US (occurrence: US)
  Receive Date: 20161213
  Receipt Date: 20161213
  Transmission Date: 20170207
  Serious: Yes (Hospitalization)
  Sender: FDA-Public Use
  Company Number: US-CELGENEUS-USA-2016118371

PATIENT
  Age: 78 Year
  Sex: Female

DRUGS (2)
  1. REVLIMID [Suspect]
     Active Substance: LENALIDOMIDE
     Indication: PLASMA CELL MYELOMA
     Dosage: 10MG
     Route: 048
     Dates: start: 20151020
  2. REVLIMID [Suspect]
     Active Substance: LENALIDOMIDE
     Dosage: 10MG
     Route: 048
     Dates: start: 201610

REACTIONS (1)
  - Thermal burn [Unknown]

NARRATIVE: CASE EVENT DATE: 201611
